FAERS Safety Report 9515822 (Version 1)
Quarter: 2013Q3

REPORT INFORMATION
  Report Type: Spontaneous
  Country: JP (occurrence: JP)
  Receive Date: 20130911
  Receipt Date: 20130911
  Transmission Date: 20140515
  Serious: Yes (Hospitalization)
  Sender: FDA-Public Use
  Company Number: JP-EISAI INC-E7389-04176-SPO-JP

PATIENT
  Age: 74 Year
  Sex: Female

DRUGS (3)
  1. HALAVEN [Suspect]
     Indication: BREAST CANCER RECURRENT
     Route: 041
     Dates: start: 20130321, end: 20130620
  2. HALAVEN [Suspect]
     Route: 041
     Dates: start: 20130801, end: 20130801
  3. HALAVEN [Suspect]
     Route: 041
     Dates: start: 20130829

REACTIONS (3)
  - Vertigo [Recovered/Resolved]
  - Nausea [Recovered/Resolved]
  - Dyspnoea [Recovered/Resolved]
